FAERS Safety Report 10202292 (Version 2)
Quarter: 2014Q2

REPORT INFORMATION
  Report Type: Spontaneous
  Country: US (occurrence: US)
  Receive Date: 20140528
  Receipt Date: 20140618
  Transmission Date: 20141212
  Serious: No
  Sender: FDA-Public Use
  Company Number: US-PFIZER INC-2014143788

PATIENT
  Age: 64 Year
  Sex: Male
  Weight: 109 kg

DRUGS (13)
  1. LYRICA [Suspect]
     Indication: PAIN IN EXTREMITY
     Dosage: 100 MG, 3X/DAY
     Route: 048
     Dates: start: 2012
  2. LYRICA [Suspect]
     Dosage: 100 MG, DAILY
     Route: 048
     Dates: start: 2014
  3. METFORMIN [Concomitant]
     Indication: DIABETES MELLITUS
     Dosage: 1000 MG, 2X/DAY
  4. AMITRIPTYLINE [Concomitant]
     Dosage: 50 MG, UNK
  5. GLIPIZIDE [Concomitant]
     Dosage: 5 MG, DAILY
  6. ATENOLOL [Concomitant]
     Dosage: 50 MG, UNK
  7. MAGNESIUM [Concomitant]
     Dosage: 400 MG, 2X/DAY
  8. VITAMIN B12 [Concomitant]
     Dosage: UNK
  9. CRESTOR [Concomitant]
     Dosage: 20 MG, DAILY
  10. GLYBURIDE [Concomitant]
     Dosage: 50 MG, UNK
  11. TOVIAZ [Concomitant]
     Dosage: UNK
  12. CLOPIDOGREL [Concomitant]
     Dosage: 75 MG, UNK
  13. ISOSORBIDE [Concomitant]
     Dosage: 60 MG, UNK

REACTIONS (4)
  - Drug ineffective [Not Recovered/Not Resolved]
  - Fatigue [Not Recovered/Not Resolved]
  - Gait disturbance [Not Recovered/Not Resolved]
  - Drug prescribing error [Unknown]
